FAERS Safety Report 22340050 (Version 3)
Quarter: 2023Q4

REPORT INFORMATION
  Report Type: Spontaneous
  Country: JP (occurrence: JP)
  Receive Date: 20230518
  Receipt Date: 20231106
  Transmission Date: 20240109
  Serious: Yes (Other)
  Sender: FDA-Public Use
  Company Number: JP-CHUGAI-2023014181

PATIENT
  Age: 77 Year
  Sex: Male
  Weight: 60 kg

DRUGS (1)
  1. VABYSMO [Suspect]
     Active Substance: FARICIMAB\FARICIMAB-SVOA
     Indication: Neovascular age-related macular degeneration
     Dosage: SOLUTION FOR INTRAVITREAL INJECTION 120MG/ML
     Route: 031
     Dates: start: 202212, end: 202301

REACTIONS (3)
  - Iridocyclitis [Recovered/Resolved with Sequelae]
  - Vitritis [Recovered/Resolved with Sequelae]
  - Disease progression [Recovered/Resolved with Sequelae]

NARRATIVE: CASE EVENT DATE: 20230201
